FAERS Safety Report 19758184 (Version 1)
Quarter: 2021Q3

REPORT INFORMATION
  Report Type: Spontaneous
  Country: FR (occurrence: FR)
  Receive Date: 20210828
  Receipt Date: 20210828
  Transmission Date: 20211014
  Serious: Yes (Hospitalization, Other)
  Sender: FDA-Public Use
  Company Number: FR-AMICI-2021AMILIT00007

PATIENT
  Age: 33 Year
  Sex: Female

DRUGS (5)
  1. DICLOFENAC [Suspect]
     Active Substance: DICLOFENAC
     Indication: BACK PAIN
     Route: 030
  2. METRONIDAZOLE. [Interacting]
     Active Substance: METRONIDAZOLE
     Indication: CLOSTRIDIAL INFECTION
     Route: 065
  3. CLINDAMYCIN. [Interacting]
     Active Substance: CLINDAMYCIN
     Indication: CLOSTRIDIAL INFECTION
     Route: 065
  4. AMOXICILLIN/CLAVULANIC ACID [Interacting]
     Active Substance: AMOXICILLIN\CLAVULANIC ACID
     Indication: CLOSTRIDIAL INFECTION
     Route: 042
  5. CIPROFLOXACIN. [Interacting]
     Active Substance: CIPROFLOXACIN
     Indication: CLOSTRIDIAL INFECTION
     Route: 042

REACTIONS (16)
  - Hypotension [Recovered/Resolved]
  - Chills [Recovered/Resolved]
  - Erythema [Recovered/Resolved]
  - Crepitations [Recovered/Resolved]
  - Musculoskeletal pain [Recovered/Resolved]
  - Coagulopathy [Recovered/Resolved]
  - Anaemia [Recovered/Resolved]
  - Swelling [Recovered/Resolved]
  - Asthenia [Recovered/Resolved]
  - Clostridial infection [Recovered/Resolved]
  - Tachycardia [Recovered/Resolved]
  - Tachypnoea [Recovered/Resolved]
  - Dyspnoea [Recovered/Resolved]
  - Muscle necrosis [Recovered/Resolved]
  - Sepsis [Recovered/Resolved]
  - Renal impairment [Recovered/Resolved]
